FAERS Safety Report 10610033 (Version 2)
Quarter: 2015Q1

REPORT INFORMATION
  Report Type: Spontaneous
  Country: US (occurrence: US)
  Receive Date: 20141126
  Receipt Date: 20150227
  Transmission Date: 20150720
  Serious: Yes (Hospitalization)
  Sender: FDA-Public Use
  Company Number: US-GLAXOSMITHKLINE-US2014GSK026487

PATIENT
  Sex: Female

DRUGS (24)
  1. GLUCATROL [Concomitant]
  2. VITAMIN D [Concomitant]
     Active Substance: CHOLECALCIFEROL
  3. VITAMIN E [Concomitant]
     Active Substance: .ALPHA.-TOCOPHEROL
  4. VENTOLIN HFA [Suspect]
     Active Substance: ALBUTEROL SULFATE
     Indication: CHRONIC OBSTRUCTIVE PULMONARY DISEASE
     Dosage: 2 PUFF(S), BID
     Route: 055
  5. TENORMIN [Concomitant]
     Active Substance: ATENOLOL
  6. ALDACTONE [Concomitant]
     Active Substance: SPIRONOLACTONE
  7. CALCIUM [Concomitant]
     Active Substance: CALCIUM
  8. HYDROCHLOROTHIAZIDE. [Concomitant]
     Active Substance: HYDROCHLOROTHIAZIDE
  9. IMODIUM [Concomitant]
     Active Substance: LOPERAMIDE HYDROCHLORIDE
  10. POTASSIUM CHLORIDE. [Concomitant]
     Active Substance: POTASSIUM CHLORIDE
  11. TRICOR [Concomitant]
     Active Substance: FENOFIBRATE
  12. HYDRALAZINE [Concomitant]
     Active Substance: HYDRALAZINE HYDROCHLORIDE
  13. REPREVE [Concomitant]
  14. VENTOLIN HFA [Suspect]
     Active Substance: ALBUTEROL SULFATE
     Indication: ASTHMA
  15. HALCION [Concomitant]
     Active Substance: TRIAZOLAM
  16. SYNTHROID [Concomitant]
     Active Substance: LEVOTHYROXINE SODIUM
  17. VERAMYST [Suspect]
     Active Substance: FLUTICASONE FUROATE
     Indication: NASAL CONGESTION
     Dosage: 2 PUFF(S), QD
     Route: 045
  18. CENTRUM [Concomitant]
     Active Substance: VITAMINS
  19. NEXIUM [Concomitant]
     Active Substance: ESOMEPRAZOLE MAGNESIUM
  20. NEURONTIN [Concomitant]
     Active Substance: GABAPENTIN
  21. SULINDAC. [Concomitant]
     Active Substance: SULINDAC
  22. COLESTID [Concomitant]
     Active Substance: COLESTIPOL HYDROCHLORIDE
  23. PLAVIX [Concomitant]
     Active Substance: CLOPIDOGREL BISULFATE
  24. RESTASIS [Concomitant]
     Active Substance: CYCLOSPORINE

REACTIONS (5)
  - Arthritis [Not Recovered/Not Resolved]
  - Balance disorder [Recovered/Resolved]
  - Respiratory tract congestion [Unknown]
  - Heart rate increased [Recovered/Resolved]
  - Labyrinthitis [Recovered/Resolved]

NARRATIVE: CASE EVENT DATE: 2014
